FAERS Safety Report 16092138 (Version 1)
Quarter: 2019Q1

REPORT INFORMATION
  Report Type: Spontaneous
  Country: US (occurrence: US)
  Receive Date: 20190319
  Receipt Date: 20190319
  Transmission Date: 20190418
  Serious: No
  Sender: FDA-Public Use
  Company Number: US-GE HEALTHCARE LIFE SCIENCES-2019CSU001356

PATIENT
  Age: 54 Year
  Sex: Female
  Weight: 87 kg

DRUGS (10)
  1. VISIPAQUE [Suspect]
     Active Substance: IODIXANOL
     Indication: COMPUTERISED TOMOGRAM PELVIS
  2. VISIPAQUE [Suspect]
     Active Substance: IODIXANOL
     Indication: COLITIS
  3. VISIPAQUE [Suspect]
     Active Substance: IODIXANOL
     Indication: COMPUTERISED TOMOGRAM ABDOMEN
     Dosage: UNK
     Route: 048
     Dates: start: 20190304, end: 20190304
  4. VISIPAQUE [Suspect]
     Active Substance: IODIXANOL
     Indication: COMPUTERISED TOMOGRAM ABDOMEN
     Dosage: UNK UNK, SINGLE
     Route: 042
     Dates: start: 20190304, end: 20190304
  5. VISIPAQUE [Suspect]
     Active Substance: IODIXANOL
     Indication: COMPUTERISED TOMOGRAM PELVIS
     Dosage: UNK
     Route: 048
     Dates: start: 20190304, end: 20190304
  6. VISIPAQUE [Suspect]
     Active Substance: IODIXANOL
     Indication: GASTROENTERITIS
  7. VISIPAQUE [Suspect]
     Active Substance: IODIXANOL
     Indication: ABDOMINAL PAIN
  8. VISIPAQUE [Suspect]
     Active Substance: IODIXANOL
     Indication: GASTROENTERITIS
  9. VISIPAQUE [Suspect]
     Active Substance: IODIXANOL
     Indication: COLITIS
  10. VISIPAQUE [Suspect]
     Active Substance: IODIXANOL
     Indication: ABDOMINAL PAIN

REACTIONS (5)
  - Pruritus [Unknown]
  - Rash generalised [Unknown]
  - Urticaria [Unknown]
  - Head discomfort [Unknown]
  - Chest discomfort [Unknown]

NARRATIVE: CASE EVENT DATE: 20190304
